FAERS Safety Report 8141988-5 (Version None)
Quarter: 2012Q1

REPORT INFORMATION
  Report Type: 
  Country: None (occurrence: None)
  Receive Date: 20120216
  Receipt Date: 20120214
  Transmission Date: 20120608
  Serious: Yes (Disabling, Other)
  Sender: FDA-Public Use
  Company Number: US-PFIZER INC-2012040020

PATIENT
  Sex: Female
  Weight: 95.238 kg

DRUGS (2)
  1. LYRICA [Suspect]
     Indication: MULTIPLE SCLEROSIS
     Dosage: 300 MG, 2X/DAY
     Route: 048
     Dates: start: 20110101
  2. LYRICA [Suspect]
     Indication: FIBROMYALGIA

REACTIONS (1)
  - MULTIPLE SCLEROSIS [None]
